FAERS Safety Report 15653368 (Version 1)
Quarter: 2018Q4

REPORT INFORMATION
  Report Type: Spontaneous
  Country: GB (occurrence: GB)
  Receive Date: 20181124
  Receipt Date: 20181124
  Transmission Date: 20190205
  Serious: Yes (Other)
  Sender: FDA-Public Use
  Company Number: GB-TEVA-2018-GB-977507

PATIENT
  Age: 81 Year
  Sex: Female
  Weight: 70 kg

DRUGS (10)
  1. GLUCOSAMINE SULFATE [Concomitant]
     Active Substance: GLUCOSAMINE SULFATE
     Dosage: 4 DOSAGE FORMS DAILY;
     Dates: start: 20151013
  2. CETIRIZINE [Concomitant]
     Active Substance: CETIRIZINE HYDROCHLORIDE
     Dosage: 1 DOSAGE FORMS DAILY;
     Dates: start: 20180727, end: 20180824
  3. DIPROBASE [Concomitant]
     Active Substance: CHLOROCRESOL
     Dosage: APPLY TO SKIN FREQUENTLY AND LIBERALLY, AS OFTE...
     Dates: start: 20160129
  4. CLOPIDOGREL [Suspect]
     Active Substance: CLOPIDOGREL BISULFATE
     Route: 065
  5. LEVOTHYROXINE. [Concomitant]
     Active Substance: LEVOTHYROXINE
     Dosage: 1 DOSAGE FORMS DAILY;
     Dates: start: 20151013
  6. PHENOXYMETHYLPENICILLIN [Concomitant]
     Active Substance: PENICILLIN V
     Dosage: 2 DOSAGE FORMS DAILY;
     Dates: start: 20151013
  7. AMLODIPINE [Suspect]
     Active Substance: AMLODIPINE BESYLATE
     Route: 065
  8. SALICYLIC ACID. [Concomitant]
     Active Substance: SALICYLIC ACID
     Dosage: 1 DOSAGE FORMS DAILY;
     Dates: start: 20181022
  9. FENOFIBRATE MICRONISED [Suspect]
     Active Substance: FENOFIBRATE
     Dosage: 267 MG
     Route: 065
  10. PARACETAMOL [Concomitant]
     Active Substance: ACETAMINOPHEN
     Dosage: FOUR TIMES DAILY
     Dates: start: 20151013

REACTIONS (2)
  - Psoriasis [Unknown]
  - Lichen nitidus [Not Recovered/Not Resolved]
